FAERS Safety Report 5871174-0 (Version None)
Quarter: 2008Q3

REPORT INFORMATION
  Report Type: 
  Country: None (occurrence: None)
  Receive Date: 20080902
  Receipt Date: 20080820
  Transmission Date: 20090109
  Serious: Yes (Hospitalization)
  Sender: FDA-Public Use
  Company Number: 2008BI016846

PATIENT
  Age: 69 Year
  Sex: Female

DRUGS (6)
  1. TYSABRI [Suspect]
     Indication: MULTIPLE SCLEROSIS
     Dosage: 300 MG;QM; IV
     Route: 042
     Dates: start: 20080310, end: 20080806
  2. NEURONTIN(CON.) [Concomitant]
  3. MULTIVITAMIN(CON.) [Concomitant]
  4. DETROL LA (CON.) [Concomitant]
  5. VITAMIN B-6 (CON.0 [Concomitant]
  6. TRAMADOL (CON.) [Concomitant]

REACTIONS (4)
  - ECCHYMOSIS [None]
  - INCREASED TENDENCY TO BRUISE [None]
  - PETECHIAE [None]
  - THROMBOCYTOPENIA [None]
